FAERS Safety Report 8666881 (Version 3)
Quarter: 2013Q4

REPORT INFORMATION
  Report Type: Report from Study
  Country: US (occurrence: US)
  Receive Date: 20120716
  Receipt Date: 20131018
  Transmission Date: 20140711
  Serious: Yes (Hospitalization)
  Sender: FDA-Public Use
  Company Number: US-ELI_LILLY_AND_COMPANY-US201207002791

PATIENT
  Age: 66 Year
  Sex: Female

DRUGS (6)
  1. TERIPARATIDE [Suspect]
     Indication: OSTEOPOROSIS
     Dosage: 20 UG, QD
     Route: 065
     Dates: start: 20120330
  2. TERIPARATIDE [Suspect]
     Dosage: 20 UG, QD
     Route: 065
  3. TERIPARATIDE [Suspect]
     Dosage: 20 UG, QD
     Route: 065
     Dates: end: 201303
  4. CALCIUM [Concomitant]
     Indication: PRODUCT USED FOR UNKNOWN INDICATION
     Dosage: UNK
     Route: 065
  5. VITAMIN D3 [Concomitant]
     Indication: PRODUCT USED FOR UNKNOWN INDICATION
     Route: 065
  6. MAGNESIUM [Concomitant]
     Indication: PRODUCT USED FOR UNKNOWN INDICATION
     Route: 065

REACTIONS (5)
  - Femur fracture [Unknown]
  - Fall [Unknown]
  - Eczema [Unknown]
  - Urticaria [Unknown]
  - Pruritus [Unknown]
